FAERS Safety Report 5270116-9 (Version None)
Quarter: 2007Q1

REPORT INFORMATION
  Report Type: 
  Country: None (occurrence: None)
  Receive Date: 20070320
  Receipt Date: 20070309
  Transmission Date: 20070707
  Serious: Yes (Hospitalization)
  Sender: FDA-Public Use
  Company Number: CA-JNJFOC-20060400542

PATIENT
  Sex: Male
  Weight: 54 kg

DRUGS (23)
  1. REMICADE [Suspect]
     Route: 042
  2. REMICADE [Suspect]
     Route: 042
  3. REMICADE [Suspect]
     Route: 042
  4. REMICADE [Suspect]
     Route: 042
  5. REMICADE [Suspect]
     Indication: RHEUMATOID ARTHRITIS
     Route: 042
  6. DURAGESIC-100 [Suspect]
     Indication: DRUG USE FOR UNKNOWN INDICATION
     Route: 062
  7. DILAUDID [Suspect]
     Indication: DRUG USE FOR UNKNOWN INDICATION
  8. BENADRYL [Concomitant]
     Indication: PREMEDICATION
     Route: 048
  9. TYLENOL [Concomitant]
     Indication: PREMEDICATION
     Route: 048
  10. GRAVOL TAB [Concomitant]
     Indication: PREMEDICATION
     Route: 048
  11. SULFASALAZINE [Concomitant]
  12. ARTHROTEC [Concomitant]
  13. SEMIDINE [Concomitant]
  14. NOVASEN [Concomitant]
  15. VITAMIN B6 [Concomitant]
  16. ISONIAZID [Concomitant]
  17. DIAZEPAM [Concomitant]
  18. DILTIAZEM [Concomitant]
  19. AMYTAL [Concomitant]
  20. METHOTREXATE [Concomitant]
  21. VENTOLIN [Concomitant]
  22. NITROGLYCERIN [Concomitant]
  23. ANTIDEPRESSANT [Concomitant]

REACTIONS (14)
  - ANAEMIA [None]
  - CEREBROVASCULAR ACCIDENT [None]
  - DIABETIC COMA [None]
  - DIZZINESS [None]
  - FATIGUE [None]
  - GAIT DISTURBANCE [None]
  - HERPES ZOSTER [None]
  - HYPOGLYCAEMIA [None]
  - NAUSEA [None]
  - PNEUMONIA [None]
  - PYREXIA [None]
  - RECTAL HAEMORRHAGE [None]
  - VOMITING [None]
  - WEIGHT DECREASED [None]
